FAERS Safety Report 10064046 (Version 6)
Quarter: 2014Q2

REPORT INFORMATION
  Report Type: Report from Study
  Country: PL (occurrence: PL)
  Receive Date: 20140408
  Receipt Date: 20140623
  Transmission Date: 20141212
  Serious: Yes (Hospitalization)
  Sender: FDA-Public Use
  Company Number: PL-ROCHE-1374460

PATIENT
  Age: 38 Year
  Sex: Male
  Weight: 77 kg

DRUGS (3)
  1. TRASTUZUMAB EMTANSINE [Suspect]
     Indication: HER-2 POSITIVE GASTRIC CANCER
     Dosage: MOST RECENT DOSE PRIOR TO BLOODY VOMITING ON 20/FEB/2014
     Route: 042
     Dates: start: 20140213
  2. DEXAMETHASONE [Concomitant]
     Indication: PREMEDICATION
     Route: 065
     Dates: start: 20140213
  3. ANTAZOLINE MESILATE [Concomitant]
     Indication: PREMEDICATION
     Route: 065
     Dates: start: 20140213

REACTIONS (1)
  - Upper gastrointestinal haemorrhage [Recovered/Resolved]
